FAERS Safety Report 5156403-3 (Version None)
Quarter: 2006Q4

REPORT INFORMATION
  Report Type: 
  Country: None (occurrence: None)
  Receive Date: 20061122
  Receipt Date: 20060928
  Transmission Date: 20070319
  Serious: Yes (Hospitalization)
  Sender: FDA-Public Use
  Company Number: BR-ABBOTT-06P-020-0348601-00

PATIENT
  Sex: Female
  Weight: 65 kg

DRUGS (4)
  1. HUMIRA [Suspect]
     Indication: RHEUMATOID ARTHRITIS
     Route: 058
     Dates: start: 20060501, end: 20060817
  2. HUMIRA [Suspect]
     Dates: start: 20060901, end: 20061030
  3. LEFLUNOMIDE [Concomitant]
     Indication: DRUG USE FOR UNKNOWN INDICATION
  4. METHOTREXATE [Concomitant]
     Indication: DRUG USE FOR UNKNOWN INDICATION

REACTIONS (3)
  - INFLUENZA [None]
  - PLEURAL EFFUSION [None]
  - PNEUMONIA [None]
